FAERS Safety Report 9955088 (Version 1)
Quarter: 2014Q1

REPORT INFORMATION
  Report Type: Spontaneous
  Country: US (occurrence: US)
  Receive Date: 20140304
  Receipt Date: 20140304
  Transmission Date: 20141002
  Serious: No
  Sender: FDA-Public Use
  Company Number: US-ABBVIE-13P-163-1076885-00

PATIENT
  Age: 40 Year
  Sex: Female

DRUGS (2)
  1. HUMIRA [Suspect]
     Indication: COLITIS ULCERATIVE
     Route: 058
     Dates: start: 20130328, end: 20130328
  2. HUMIRA [Suspect]
     Route: 058
     Dates: start: 20130411

REACTIONS (2)
  - Injury associated with device [Recovered/Resolved]
  - Device malfunction [Unknown]
